FAERS Safety Report 12420896 (Version 2)
Quarter: 2016Q2

REPORT INFORMATION
  Report Type: Report from Study
  Country: US (occurrence: US)
  Receive Date: 20160531
  Receipt Date: 20160607
  Transmission Date: 20160815
  Serious: No
  Sender: FDA-Public Use
  Company Number: US-AMGEN-USASL2016064130

PATIENT
  Age: 29 Year
  Sex: Male

DRUGS (2)
  1. MORPHINE [Suspect]
     Active Substance: MORPHINE
     Indication: PRODUCT USED FOR UNKNOWN INDICATION
     Dosage: UNK
     Route: 065
  2. ENBREL [Suspect]
     Active Substance: ETANERCEPT
     Indication: RHEUMATOID ARTHRITIS
     Dosage: 50 MG, QWK
     Route: 065
     Dates: start: 20160517

REACTIONS (8)
  - Generalised oedema [Unknown]
  - Swelling face [Recovered/Resolved]
  - Pruritus generalised [Unknown]
  - Peripheral swelling [Recovered/Resolved]
  - Pyrexia [Unknown]
  - Flushing [Recovered/Resolved]
  - Cough [Unknown]
  - Paranasal sinus discomfort [Unknown]

NARRATIVE: CASE EVENT DATE: 201605
